FAERS Safety Report 9658986 (Version 1)
Quarter: 2013Q4

REPORT INFORMATION
  Report Type: Spontaneous
  Country: US (occurrence: US)
  Receive Date: 20131031
  Receipt Date: 20131031
  Transmission Date: 20140711
  Serious: No
  Sender: FDA-Public Use
  Company Number: US-009507513-1310USA013865

PATIENT
  Sex: Female

DRUGS (5)
  1. JANUMET XR [Suspect]
     Dosage: UNKNOWN
     Route: 048
     Dates: start: 201204
  2. PROTONIX [Concomitant]
     Dosage: UNK, QD
  3. MICARDIS [Concomitant]
  4. ASPIRIN [Concomitant]
  5. VITAMINS (UNSPECIFIED) [Concomitant]

REACTIONS (3)
  - Irritable bowel syndrome [Unknown]
  - Drug ineffective [Unknown]
  - Medication residue present [Unknown]
